FAERS Safety Report 14923971 (Version 3)
Quarter: 2018Q2

REPORT INFORMATION
  Report Type: Report from Study
  Country: None (occurrence: KR)
  Receive Date: 20180522
  Receipt Date: 20180621
  Transmission Date: 20180711
  Serious: Yes (Hospitalization)
  Sender: FDA-Public Use
  Company Number: KR-ABBVIE-18P-090-2357787-00

PATIENT
  Age: 79 Year
  Sex: Female
  Weight: 62 kg

DRUGS (10)
  1. EXVIERA [Suspect]
     Active Substance: DASABUVIR
     Indication: HEPATITIS C
     Route: 048
     Dates: start: 20170911, end: 20171203
  2. ACETAMINOPHEN ER [Concomitant]
     Active Substance: ACETAMINOPHEN
     Indication: HEPATOCELLULAR CARCINOMA
     Route: 048
     Dates: start: 20180105, end: 20180112
  3. COZAAR PLUS F [Concomitant]
     Indication: HYPERTENSION
     Route: 048
     Dates: start: 20170911
  4. MOSAPRIDE CITRATE [Concomitant]
     Active Substance: MOSAPRIDE CITRATE
     Indication: HEPATOCELLULAR CARCINOMA
     Route: 048
     Dates: start: 20180108
  5. FLUMAZENIL. [Concomitant]
     Active Substance: FLUMAZENIL
     Indication: HEPATOCELLULAR CARCINOMA
     Route: 048
     Dates: start: 20180105, end: 20180105
  6. VIEKIRAX [Suspect]
     Active Substance: OMBITASVIR\PARITAPREVIR\RITONAVIR
     Indication: HEPATITIS C
     Route: 048
     Dates: start: 20170911, end: 20171203
  7. CEPFODOXIME PROXETIL [Concomitant]
     Indication: HEPATOCELLULAR CARCINOMA
     Route: 048
     Dates: start: 20180108, end: 20180112
  8. CEFOTAXIME NA [Concomitant]
     Indication: HEPATOCELLULAR CARCINOMA
     Route: 017
     Dates: start: 20180105, end: 20180106
  9. CIPROFLOXACIN HCL [Concomitant]
     Active Substance: CIPROFLOXACIN HYDROCHLORIDE
     Indication: HEPATOCELLULAR CARCINOMA
     Route: 048
     Dates: start: 20180108, end: 20180112
  10. METACLOPRAMIDE HCL [Concomitant]
     Indication: HEPATOCELLULAR CARCINOMA
     Route: 048
     Dates: start: 20180105, end: 20180112

REACTIONS (2)
  - Alopecia [Unknown]
  - Hepatocellular carcinoma [Recovered/Resolved]

NARRATIVE: CASE EVENT DATE: 20171016
